FAERS Safety Report 4356788-1 (Version None)
Quarter: 2004Q2

REPORT INFORMATION
  Report Type: 
  Country: None (occurrence: None)
  Receive Date: 20040507
  Receipt Date: 20040505
  Transmission Date: 20050107
  Serious: Yes (Hospitalization)
  Sender: FDA-Public Use
  Company Number: 200411286GDS

PATIENT
  Age: 20 Year
  Sex: Male

DRUGS (1)
  1. ASPIRIN [Suspect]
     Indication: HEADACHE
     Dosage: 10 G, TOTAL DAILY, ORAL
     Route: 048

REACTIONS (13)
  - ACCIDENTAL OVERDOSE [None]
  - AGITATION [None]
  - DEAFNESS TRANSITORY [None]
  - DEHYDRATION [None]
  - HAEMATEMESIS [None]
  - LEUKOCYTOSIS [None]
  - NAUSEA [None]
  - OTOTOXICITY [None]
  - RESTLESSNESS [None]
  - SINUS TACHYCARDIA [None]
  - TACHYPNOEA [None]
  - THINKING ABNORMAL [None]
  - TINNITUS [None]
